FAERS Safety Report 14233734 (Version 1)
Quarter: 2017Q4

REPORT INFORMATION
  Report Type: Spontaneous
  Country: DE (occurrence: DE)
  Receive Date: 20171129
  Receipt Date: 20171129
  Transmission Date: 20180321
  Serious: Yes (Hospitalization, Disabling)
  Sender: FDA-Public Use
  Company Number: DE-SA-2017SA208820

PATIENT
  Age: 76 Year
  Sex: Female
  Weight: 87 kg

DRUGS (7)
  1. CANDESARTAN. [Concomitant]
     Active Substance: CANDESARTAN
     Indication: HYPERTENSION
     Dosage: 8 MG : STRENGTH
     Route: 048
  2. L-THYROXIN [Concomitant]
     Active Substance: LEVOTHYROXINE SODIUM
     Dosage: 75 MCG: STRENGTH
     Route: 048
  3. AMLODIPIN [Concomitant]
     Active Substance: AMLODIPINE BESYLATE
     Indication: HYPERTENSION
     Dosage: 5 MG : STRENGTH
     Route: 048
  4. BISOPROLOL [Concomitant]
     Active Substance: BISOPROLOL
     Indication: HYPERTENSION
     Dosage: 2.5 MG : STRENGTH
     Route: 048
  5. PRALUENT [Suspect]
     Active Substance: ALIROCUMAB
     Indication: HYPERCHOLESTEROLAEMIA
     Route: 058
     Dates: start: 20170308, end: 201706
  6. CLOPIDOGREL [Concomitant]
     Active Substance: CLOPIDOGREL BISULFATE
     Indication: CORONARY ARTERY DISEASE
     Dosage: 75 MG: STRENGTH
     Route: 048
  7. ALIROCUMAB PREFILLED PEN [Suspect]
     Active Substance: ALIROCUMAB
     Indication: HYPERCHOLESTEROLAEMIA
     Dates: start: 20170308, end: 201706

REACTIONS (2)
  - Rash [Not Recovered/Not Resolved]
  - Eczema nummular [Recovered/Resolved]

NARRATIVE: CASE EVENT DATE: 201706
